FAERS Safety Report 24667846 (Version 1)
Quarter: 2024Q4

REPORT INFORMATION
  Report Type: Spontaneous
  Country: DE (occurrence: DE)
  Receive Date: 20241127
  Receipt Date: 20241127
  Transmission Date: 20250114
  Serious: Yes (Death)
  Sender: ALVOGEN
  Company Number: DE-THERAMEX-2024003155

PATIENT
  Age: 78 Year
  Sex: Male

DRUGS (1)
  1. TERIPARATIDE [Suspect]
     Active Substance: TERIPARATIDE
     Indication: Osteoporosis
     Dosage: 20 MICROGRAMS/80 MICROLITER PER INJECTION,?ONE INJECTION PER DAY
     Dates: start: 20240903

REACTIONS (1)
  - Death [Fatal]

NARRATIVE: CASE EVENT DATE: 20241021
